FAERS Safety Report 15246158 (Version 3)
Quarter: 2018Q3

REPORT INFORMATION
  Report Type: Report from Study
  Country: CN (occurrence: CN)
  Receive Date: 20180806
  Receipt Date: 20180829
  Transmission Date: 20181010
  Serious: Yes (Hospitalization)
  Sender: FDA-Public Use
  Company Number: CN-EISAI MEDICAL RESEARCH-EC-2018-039665

PATIENT
  Age: 80 Year
  Sex: Female
  Weight: 65 kg

DRUGS (12)
  1. PANTOPRAZOLE [Concomitant]
     Active Substance: PANTOPRAZOLE
  2. NICARDIPINE [Concomitant]
     Active Substance: NICARDIPINE
  3. LENVATINIB [Suspect]
     Active Substance: LENVATINIB
     Dosage: 20 MG OR PLACEBO
     Route: 048
     Dates: start: 20180814, end: 20180827
  4. NIFEDIPINE. [Concomitant]
     Active Substance: NIFEDIPINE
  5. OMEPRAZOLE. [Concomitant]
     Active Substance: OMEPRAZOLE
  6. METHOXAMINE [Concomitant]
     Active Substance: METHOXAMINE
  7. POTASSIUM CHLORIDE. [Concomitant]
     Active Substance: POTASSIUM CHLORIDE
  8. ETOMIDATE. [Concomitant]
     Active Substance: ETOMIDATE
  9. PROPOFOL. [Concomitant]
     Active Substance: PROPOFOL
  10. SODIUM CHLORIDE. [Concomitant]
     Active Substance: SODIUM CHLORIDE
  11. CHLORHEXIDINE GLUCONATE. [Concomitant]
     Active Substance: CHLORHEXIDINE GLUCONATE
  12. LENVATINIB [Suspect]
     Active Substance: LENVATINIB
     Indication: THYROID CANCER
     Dosage: 24 MG OR PLACEBO
     Route: 048
     Dates: start: 20180312, end: 20180730

REACTIONS (2)
  - Femoral neck fracture [Not Recovered/Not Resolved]
  - Mouth haemorrhage [Recovered/Resolved]

NARRATIVE: CASE EVENT DATE: 20180428
